FAERS Safety Report 17923025 (Version 1)
Quarter: 2020Q2

REPORT INFORMATION
  Report Type: Spontaneous
  Country: NO (occurrence: NO)
  Receive Date: 20200622
  Receipt Date: 20200622
  Transmission Date: 20200714
  Serious: Yes (Death, Hospitalization)
  Sender: FDA-Public Use
  Company Number: NO-BAYER-2020-114303

PATIENT
  Sex: Male

DRUGS (1)
  1. XOFIGO [Suspect]
     Active Substance: RADIUM RA-223 DICHLORIDE
     Dosage: 4.89 MBQ
     Dates: start: 20200514, end: 20200514

REACTIONS (4)
  - Nausea [None]
  - Diarrhoea [None]
  - General physical health deterioration [Fatal]
  - Asthenia [None]
